FAERS Safety Report 8880998 (Version 1)
Quarter: 2012Q4

REPORT INFORMATION
  Report Type: 
  Country: FR (occurrence: FR)
  Receive Date: 20121101
  Receipt Date: 20121101
  Transmission Date: 20130627
  Serious: Yes (Death, Hospitalization, Other)
  Sender: FDA-Public Use
  Company Number: FR-PFIZER INC-2012269321

PATIENT
  Age: 80 Year
  Sex: Male

DRUGS (5)
  1. CORDARONE [Suspect]
     Indication: ATRIAL FIBRILLATION
     Dosage: 200 mg, daily
     Route: 048
     Dates: start: 201203, end: 20120930
  2. PRADAXA [Interacting]
     Indication: ATRIAL FIBRILLATION
     Dosage: 110 mg, Twice a day
     Route: 048
     Dates: start: 20120920, end: 20120930
  3. LYRICA [Concomitant]
     Dosage: UNK
  4. PIASCLEDINE [Concomitant]
     Dosage: UNK
  5. COOLMETEC [Concomitant]
     Dosage: UNK

REACTIONS (3)
  - Drug interaction [Fatal]
  - Haemorrhagic stroke [Fatal]
  - Hypertension [Unknown]
